FAERS Safety Report 4944070-0 (Version None)
Quarter: 2006Q1

REPORT INFORMATION
  Report Type: 
  Country: None (occurrence: None)
  Receive Date: 20060315
  Receipt Date: 20060303
  Transmission Date: 20060701
  Serious: Yes (Hospitalization, Other)
  Sender: FDA-Public Use
  Company Number: US-BRISTOL-MYERS SQUIBB COMPANY-13307707

PATIENT
  Age: 78 Year
  Sex: Female
  Weight: 70 kg

DRUGS (7)
  1. TAXOL [Suspect]
     Indication: TONGUE NEOPLASM MALIGNANT STAGE UNSPECIFIED
     Route: 042
     Dates: start: 20030101, end: 20050601
  2. CARBOPLATIN [Suspect]
     Indication: TONGUE NEOPLASM MALIGNANT STAGE UNSPECIFIED
     Dates: start: 20030101, end: 20050601
  3. NEURONTIN [Concomitant]
  4. ZOLOFT [Concomitant]
  5. BENEFIBER [Concomitant]
  6. IBUPROFEN [Concomitant]
  7. ULTRACET [Concomitant]

REACTIONS (7)
  - ABASIA [None]
  - ATELECTASIS [None]
  - DYSPNOEA [None]
  - LOSS OF CONSCIOUSNESS [None]
  - PARAESTHESIA [None]
  - PARESIS [None]
  - RESPIRATORY ARREST [None]
